FAERS Safety Report 8071738-2 (Version None)
Quarter: 2012Q1

REPORT INFORMATION
  Report Type: 
  Country: None (occurrence: None)
  Receive Date: 20120125
  Receipt Date: 20120117
  Transmission Date: 20120608
  Serious: Yes (Hospitalization)
  Sender: FDA-Public Use
  Company Number: US-MERCK-1110USA02744

PATIENT
  Age: 75 Year
  Sex: Male

DRUGS (8)
  1. DIGOXIN [Concomitant]
     Indication: MITRAL VALVE PROLAPSE
     Route: 065
     Dates: start: 19990101
  2. VESICARE [Concomitant]
     Indication: HYPERTONIC BLADDER
     Route: 065
     Dates: start: 20010101
  3. FOSAMAX [Suspect]
     Indication: OSTEOPOROSIS
     Route: 048
     Dates: start: 20060402, end: 20060910
  4. FOSAMAX PLUS D [Suspect]
     Indication: OSTEOPOROSIS
     Route: 048
     Dates: start: 20060911, end: 20100328
  5. VITAMINS (UNSPECIFIED) [Concomitant]
     Route: 065
  6. CALCIUM (UNSPECIFIED) [Concomitant]
     Route: 065
  7. ACTONEL [Suspect]
     Indication: OSTEOPOROSIS
     Route: 048
     Dates: start: 20020305, end: 20060406
  8. COUMADIN [Concomitant]
     Indication: ATRIAL FIBRILLATION
     Route: 065
     Dates: start: 20000101

REACTIONS (19)
  - GASTROINTESTINAL DISORDER [None]
  - ERECTILE DYSFUNCTION [None]
  - RESTLESS LEGS SYNDROME [None]
  - HYPERTRIGLYCERIDAEMIA [None]
  - HEADACHE [None]
  - CHRONIC OBSTRUCTIVE PULMONARY DISEASE [None]
  - ANAEMIA POSTOPERATIVE [None]
  - ARTHRITIS [None]
  - ARTHROPATHY [None]
  - FURUNCLE [None]
  - FALL [None]
  - PARONYCHIA [None]
  - RECTAL HAEMORRHAGE [None]
  - ESSENTIAL TREMOR [None]
  - SCIATICA [None]
  - FEMUR FRACTURE [None]
  - HYPERTENSION [None]
  - SEBORRHOEIC DERMATITIS [None]
  - INGUINAL HERNIA [None]
